FAERS Safety Report 15194715 (Version 1)
Quarter: 2018Q3

REPORT INFORMATION
  Report Type: Spontaneous
  Country: IT (occurrence: IT)
  Receive Date: 20180725
  Receipt Date: 20180725
  Transmission Date: 20181010
  Serious: Yes (Hospitalization, Other)
  Sender: FDA-Public Use
  Company Number: IT-GLAXOSMITHKLINE-IT2018128055

PATIENT
  Age: 50 Year
  Sex: Female

DRUGS (2)
  1. DELORAZEPAM [Suspect]
     Active Substance: DELORAZEPAM
     Indication: SUICIDE ATTEMPT
     Dosage: IN TOTAL
     Route: 065
     Dates: start: 20180521, end: 20180521
  2. WELLBUTRIN [Suspect]
     Active Substance: BUPROPION HYDROCHLORIDE
     Indication: SUICIDE ATTEMPT
     Dosage: IN TOTAL
     Route: 048
     Dates: start: 20180521, end: 20180521

REACTIONS (3)
  - Drug abuse [Unknown]
  - Toxicity to various agents [Unknown]
  - Suicide attempt [Unknown]

NARRATIVE: CASE EVENT DATE: 20180521
